FAERS Safety Report 9638120 (Version 1)
Quarter: 2013Q4

REPORT INFORMATION
  Report Type: Spontaneous
  Country: US (occurrence: US)
  Receive Date: 20131022
  Receipt Date: 20131022
  Transmission Date: 20140711
  Serious: Yes (Other)
  Sender: FDA-Public Use
  Company Number: US-PFIZER INC-2013295558

PATIENT
  Age: 59 Year
  Sex: Female

DRUGS (2)
  1. GLIBENCLAMIDE [Suspect]
     Dosage: UNK
  2. BYETTA [Suspect]
     Dosage: 5 UG, UNK
     Dates: end: 20060208

REACTIONS (1)
  - Hypoglycaemia [Unknown]
